FAERS Safety Report 26069620 (Version 1)
Quarter: 2025Q4

REPORT INFORMATION
  Report Type: Spontaneous
  Country: US (occurrence: None)
  Receive Date: 20251119
  Receipt Date: 20251119
  Transmission Date: 20260118
  Serious: Yes (Other)
  Sender: FDA-CTU
  Company Number: None

PATIENT
  Age: 76 Year
  Sex: Male

DRUGS (6)
  1. TADALAFIL [Suspect]
     Active Substance: TADALAFIL
     Indication: Erectile dysfunction
     Dosage: FREQUENCY : AS NEEDED;?
     Route: 048
     Dates: start: 20241204, end: 20251118
  2. ELIQUIS [Suspect]
     Active Substance: APIXABAN
  3. LOSARTAN [Suspect]
     Active Substance: LOSARTAN
  4. UNSPECIFIED INGREDIENT [Concomitant]
     Active Substance: UNSPECIFIED INGREDIENT
  5. UNSPECIFIED INGREDIENT [Concomitant]
     Active Substance: UNSPECIFIED INGREDIENT
  6. PROSTATE MEDICATION [Concomitant]

REACTIONS (5)
  - Dementia [None]
  - Cerebrovascular accident [None]
  - COVID-19 [None]
  - Cardiac disorder [None]
  - Drug interaction [None]

NARRATIVE: CASE EVENT DATE: 20251118
